FAERS Safety Report 17158862 (Version 2)
Quarter: 2020Q1

REPORT INFORMATION
  Report Type: Report from Study
  Country: IT (occurrence: IT)
  Receive Date: 20191216
  Receipt Date: 20200201
  Transmission Date: 20200409
  Serious: Yes (Other)
  Sender: FDA-Public Use
  Company Number: IT-BAYER-2019-222672

PATIENT
  Age: 33 Year
  Sex: Female

DRUGS (1)
  1. NAPROXEN SODIUM (SYNFLEX) [Suspect]
     Active Substance: NAPROXEN SODIUM
     Indication: DRUG ABUSE
     Dosage: 20 DF, ONCE
     Route: 048
     Dates: start: 20191026, end: 20191026

REACTIONS (5)
  - Drug abuse [Recovering/Resolving]
  - Intentional overdose [Recovering/Resolving]
  - Hypokinesia [Recovering/Resolving]
  - Bradyphrenia [Recovering/Resolving]
  - Intentional self-injury [Recovering/Resolving]

NARRATIVE: CASE EVENT DATE: 20191026
